FAERS Safety Report 20562228 (Version 1)
Quarter: 2022Q1

REPORT INFORMATION
  Report Type: Spontaneous
  Country: US (occurrence: US)
  Receive Date: 20220307
  Receipt Date: 20220307
  Transmission Date: 20220424
  Serious: Yes (Hospitalization, Other)
  Sender: FDA-Public Use
  Company Number: US-BAYER-2022A032783

PATIENT
  Age: 44 Year
  Sex: Female

DRUGS (2)
  1. ADEMPAS [Suspect]
     Active Substance: RIOCIGUAT
     Indication: Product used for unknown indication
     Dosage: 2 MG, TID
     Dates: start: 201604
  2. AMBRISENTAN [Suspect]
     Active Substance: AMBRISENTAN
     Indication: Pulmonary hypertension
     Dosage: 10 MG, QD
     Dates: start: 20150515

REACTIONS (6)
  - COVID-19 pneumonia [None]
  - Renal failure [Unknown]
  - Malaise [Unknown]
  - Nervousness [Unknown]
  - Oxygen consumption increased [Unknown]
  - Therapy interrupted [Unknown]
